FAERS Safety Report 9983477 (Version 1)
Quarter: 2014Q1

REPORT INFORMATION
  Report Type: Spontaneous
  Country: US (occurrence: US)
  Receive Date: 20140307
  Receipt Date: 20140307
  Transmission Date: 20141002
  Serious: Yes (Other)
  Sender: FDA-Public Use
  Company Number: US-SA-2014SA028727

PATIENT
  Age: 46 Year
  Sex: Female

DRUGS (3)
  1. LANTUS SOLOSTAR [Suspect]
     Indication: TYPE 2 DIABETES MELLITUS
     Dosage: DOSE:32 UNIT(S)
     Route: 065
     Dates: start: 2005
  2. METFORMIN [Suspect]
     Route: 065
  3. SOLOSTAR [Concomitant]
     Dates: start: 2005

REACTIONS (14)
  - Glaucoma [Unknown]
  - Retinal vascular disorder [Unknown]
  - Cataract [Unknown]
  - Eye haemorrhage [Unknown]
  - Lipodystrophy acquired [Unknown]
  - Oedema [Unknown]
  - Rash [Unknown]
  - Weight increased [Unknown]
  - Pruritus [Unknown]
  - Visual impairment [Unknown]
  - Blood glucose increased [Unknown]
  - Glycosylated haemoglobin increased [Unknown]
  - Hypoglycaemia [Unknown]
  - Drug dose omission [Unknown]
